FAERS Safety Report 5583882-X (Version None)
Quarter: 2008Q1

REPORT INFORMATION
  Report Type: 
  Country: None (occurrence: None)
  Receive Date: 20080108
  Receipt Date: 20071226
  Transmission Date: 20080703
  Serious: Yes (Hospitalization)
  Sender: FDA-Public Use
  Company Number: AT-TYCO HEALTHCARE/MALLINCKRODT-T200701608

PATIENT

DRUGS (1)
  1. LIQUID BAROSPERSE [Suspect]
     Indication: GASTRIC DISORDER

REACTIONS (1)
  - CONTRAST MEDIA REACTION [None]
